FAERS Safety Report 5676708-7 (Version None)
Quarter: 2008Q1

REPORT INFORMATION
  Report Type: 
  Country: None (occurrence: None)
  Receive Date: 20080318
  Receipt Date: 20080307
  Transmission Date: 20080703
  Serious: Yes (Death, Hospitalization, Other)
  Sender: FDA-Public Use
  Company Number: 130-C5013-08011585

PATIENT
  Age: 60 Year
  Sex: Male

DRUGS (7)
  1. CC-5013 (LENALIDOMIDE) (CAPSULES) [Suspect]
     Indication: CHRONIC LYMPHOCYTIC LEUKAEMIA
     Dosage: 10 MG, 1 IN 1 D, ORAL : 15 MG, 1 IN 1 D, ORAL : 15 MG, 1 IN 1 D, ORAL
     Route: 048
     Dates: start: 20070910, end: 20070924
  2. CC-5013 (LENALIDOMIDE) (CAPSULES) [Suspect]
     Indication: CHRONIC LYMPHOCYTIC LEUKAEMIA
     Dosage: 10 MG, 1 IN 1 D, ORAL : 15 MG, 1 IN 1 D, ORAL : 15 MG, 1 IN 1 D, ORAL
     Route: 048
     Dates: start: 20071006
  3. CC-5013 (LENALIDOMIDE) (CAPSULES) [Suspect]
     Indication: CHRONIC LYMPHOCYTIC LEUKAEMIA
     Dosage: 10 MG, 1 IN 1 D, ORAL : 15 MG, 1 IN 1 D, ORAL : 15 MG, 1 IN 1 D, ORAL
     Route: 048
     Dates: start: 20071109
  4. CC-5013 (LENALIDOMIDE) (CAPSULES) [Suspect]
     Indication: CHRONIC LYMPHOCYTIC LEUKAEMIA
     Dosage: 10 MG, 1 IN 1 D, ORAL : 15 MG, 1 IN 1 D, ORAL : 15 MG, 1 IN 1 D, ORAL
     Route: 048
     Dates: start: 20071207
  5. METHYLPREDNISOLONE [Concomitant]
  6. IMMUNOGLOBULINS (IMMUNOGLOBULINS) [Concomitant]
  7. ANTIFUNGAL (ANTIFUNGALS) [Concomitant]

REACTIONS (14)
  - ABDOMINAL DISCOMFORT [None]
  - BLOOD CREATININE INCREASED [None]
  - BLOOD LACTATE DEHYDROGENASE INCREASED [None]
  - CHRONIC LYMPHOCYTIC LEUKAEMIA [None]
  - DISEASE PROGRESSION [None]
  - FEBRILE NEUTROPENIA [None]
  - HAEMOGLOBIN DECREASED [None]
  - LYMPHOCYTE COUNT INCREASED [None]
  - MALIGNANT NEOPLASM PROGRESSION [None]
  - MULTI-ORGAN FAILURE [None]
  - PLATELET COUNT DECREASED [None]
  - PNEUMONIA [None]
  - RASH [None]
  - URINARY TRACT INFECTION [None]
